FAERS Safety Report 10716085 (Version 2)
Quarter: 2015Q1

REPORT INFORMATION
  Report Type: Spontaneous
  Country: US (occurrence: US)
  Receive Date: 20150116
  Receipt Date: 20150121
  Transmission Date: 20150721
  Serious: Yes (Disabling)
  Sender: FDA-Public Use
  Company Number: US-BAYER-2015-002931

PATIENT
  Sex: Female

DRUGS (1)
  1. BETASERON [Suspect]
     Active Substance: INTERFERON BETA-1B
     Dosage: UNK
     Dates: end: 201402

REACTIONS (5)
  - Activities of daily living impaired [None]
  - Mobility decreased [None]
  - Abasia [None]
  - Intentional product misuse [None]
  - Asthenia [None]
